FAERS Safety Report 25564838 (Version 1)
Quarter: 2025Q3

REPORT INFORMATION
  Report Type: Spontaneous
  Country: US (occurrence: US)
  Receive Date: 20250716
  Receipt Date: 20250716
  Transmission Date: 20251020
  Serious: No
  Sender: NOVO NORDISK
  Company Number: US-NOVOPROD-1332366

PATIENT
  Sex: Male

DRUGS (1)
  1. OZEMPIC [Suspect]
     Active Substance: SEMAGLUTIDE
     Indication: Weight control
     Route: 058

REACTIONS (6)
  - Insulin resistance [Unknown]
  - Hyperlipidaemia [Unknown]
  - Obstructive sleep apnoea syndrome [Unknown]
  - Coronary artery disease [Unknown]
  - Blood glucose increased [Unknown]
  - Off label use [Unknown]
